FAERS Safety Report 11540529 (Version 1)
Quarter: 2015Q3

REPORT INFORMATION
  Report Type: Spontaneous
  Country: US (occurrence: US)
  Receive Date: 20150923
  Receipt Date: 20150923
  Transmission Date: 20151125
  Serious: No
  Sender: FDA-Public Use
  Company Number: US-BEH-2015049126

PATIENT
  Age: 20 Year
  Sex: Female
  Weight: 83 kg

DRUGS (17)
  1. HYDROXYZINE [Concomitant]
     Active Substance: HYDROXYZINE\HYDROXYZINE HYDROCHLORIDE
  2. PROVERA [Concomitant]
     Active Substance: MEDROXYPROGESTERONE ACETATE
  3. PRIVIGEN [Suspect]
     Active Substance: HUMAN IMMUNOGLOBULIN G
     Indication: ACUTE MYELOID LEUKAEMIA
     Route: 042
  4. VORICONAZOLE. [Concomitant]
     Active Substance: VORICONAZOLE
  5. SODIUM CHLORIDE. [Concomitant]
     Active Substance: SODIUM CHLORIDE
  6. PROGRAF [Concomitant]
     Active Substance: TACROLIMUS\TACROLIMUS ANHYDROUS
  7. CLARITIN [Concomitant]
     Active Substance: LORATADINE
  8. NORCO [Concomitant]
     Active Substance: ACETAMINOPHEN\HYDROCODONE BITARTRATE
  9. ACETAMINOPHEN. [Concomitant]
     Active Substance: ACETAMINOPHEN
  10. VFEND [Concomitant]
     Active Substance: VORICONAZOLE
  11. VALTREX [Concomitant]
     Active Substance: VALACYCLOVIR HYDROCHLORIDE
  12. DIPHENHYDRAMINE. [Concomitant]
     Active Substance: DIPHENHYDRAMINE
  13. EPIPEN [Concomitant]
     Active Substance: EPINEPHRINE
  14. CIPRO [Concomitant]
     Active Substance: CIPROFLOXACIN HYDROCHLORIDE
  15. PREDNISONE. [Concomitant]
     Active Substance: PREDNISONE
  16. HEPARIN [Concomitant]
     Active Substance: HEPARIN SODIUM
  17. RESTORIL [Concomitant]
     Active Substance: TEMAZEPAM

REACTIONS (1)
  - Headache [Unknown]

NARRATIVE: CASE EVENT DATE: 20150217
